FAERS Safety Report 4627163-7 (Version None)
Quarter: 2005Q2

REPORT INFORMATION
  Report Type: 
  Country: None (occurrence: None)
  Receive Date: 20050405
  Receipt Date: 20050401
  Transmission Date: 20051028
  Serious: Yes (Life-Threatening)
  Sender: FDA-Public Use
  Company Number: FR-GLAXOSMITHKLINE-B0376581A

PATIENT
  Age: 55 Year
  Sex: Male

DRUGS (4)
  1. CLAMOXYL [Suspect]
     Indication: NASOPHARYNGITIS
     Dosage: 1UNIT SINGLE DOSE
     Route: 048
     Dates: start: 20041106, end: 20041106
  2. HEXASPRAY [Suspect]
     Indication: NASOPHARYNGITIS
     Dosage: 1UNIT SINGLE DOSE
     Route: 002
     Dates: start: 20041106, end: 20041106
  3. RHINOFLUIMUCIL [Suspect]
     Indication: NASOPHARYNGITIS
     Route: 045
     Dates: start: 20041106
  4. LEVOTHYROXINE SODIUM [Concomitant]
     Indication: AUTOIMMUNE THYROIDITIS
     Route: 065

REACTIONS (6)
  - ANAPHYLACTIC SHOCK [None]
  - BLOOD PRESSURE SYSTOLIC DECREASED [None]
  - HYPOTENSION [None]
  - PARAESTHESIA [None]
  - SKIN TEST POSITIVE [None]
  - URTICARIA [None]
